FAERS Safety Report 16697943 (Version 1)
Quarter: 2019Q3

REPORT INFORMATION
  Report Type: Spontaneous
  Country: DE (occurrence: DE)
  Receive Date: 20190813
  Receipt Date: 20190813
  Transmission Date: 20191004
  Serious: Yes (Hospitalization)
  Sender: FDA-Public Use
  Company Number: DE-PFIZER INC-2019342591

PATIENT
  Age: 82 Year
  Sex: Male
  Weight: 112 kg

DRUGS (18)
  1. MADOPAR DEPOT [Concomitant]
     Active Substance: BENSERAZIDE HYDROCHLORIDE\LEVODOPA
     Dosage: UNK UNK, 2X/DAY, 1-0-1
     Route: 048
  2. DEKRISTOL [Concomitant]
     Active Substance: CHOLECALCIFEROL
     Dosage: 20000 IU, EVERY 2 WEEKS
  3. TILIDIN [Concomitant]
     Active Substance: NALOXONE HYDROCHLORIDE\TILIDINE HYDROCHLORIDE
     Dosage: 100/8 MG
     Route: 048
  4. CEFTAZIDIME. [Suspect]
     Active Substance: CEFTAZIDIME
     Dosage: UNK
  5. FUROSEMID [Concomitant]
     Active Substance: FUROSEMIDE
     Dosage: 500 MG, 2X/DAY, 1-1-0
     Route: 048
  6. ALLOPURINOL. [Concomitant]
     Active Substance: ALLOPURINOL
     Dosage: 300 MG, 1/2-0-0
     Route: 048
  7. PARICALCITOL. [Concomitant]
     Active Substance: PARICALCITOL
     Dosage: TUE, THUR, SA
     Route: 042
  8. BISOPROLOL [Concomitant]
     Active Substance: BISOPROLOL
     Dosage: 2.5 MG, 2X/DAY, 1-0-1
     Route: 048
  9. MIMPARA [Concomitant]
     Active Substance: CINACALCET HYDROCHLORIDE
     Dosage: 30 MG, 2-0-0
     Route: 048
  10. ASPIRIN. [Concomitant]
     Active Substance: ASPIRIN
     Dosage: 100 MG, 1X/DAY, 1-0-0
     Route: 048
  11. FERRLECIT [FERRIC SODIUM GLUCONATE COMPLEX] [Concomitant]
     Dosage: 62.5 MG, WEEKLY
     Route: 042
  12. TAMSULOSIN [Concomitant]
     Active Substance: TAMSULOSIN
     Dosage: 0.4 MG, 1X/DAY, 0-0-1
     Route: 048
  13. NOVAMINSULFON [Concomitant]
     Active Substance: METAMIZOLE
     Dosage: 500 MG, AS NEEDED
     Route: 048
  14. LANTUS [Concomitant]
     Active Substance: INSULIN GLARGINE
     Dosage: 22 IU, 1X/DAY, 0-0-0-1
     Route: 058
  15. REPAGLINIDE. [Concomitant]
     Active Substance: REPAGLINIDE
     Dosage: 1 MG, 3X/DAY, 1-1-1
     Route: 048
  16. PANTOPRAZOLE [Concomitant]
     Active Substance: PANTOPRAZOLE
     Dosage: 40 MG, 2X/DAY, 1-0-1
     Route: 048
  17. FOSRENOL [Concomitant]
     Active Substance: LANTHANUM CARBONATE
     Dosage: 1000 MG, 1-2-2
     Route: 048
  18. SIMVASTATIN. [Concomitant]
     Active Substance: SIMVASTATIN
     Dosage: 40 MG, 1X/DAY, 0-0-1
     Route: 048

REACTIONS (4)
  - Pneumonia [Unknown]
  - Thrombocytopenia [Unknown]
  - Productive cough [Unknown]
  - Cough [Unknown]
